FAERS Safety Report 10045694 (Version 2)
Quarter: 2014Q2

REPORT INFORMATION
  Report Type: Spontaneous
  Country: US (occurrence: US)
  Receive Date: 20140328
  Receipt Date: 20140408
  Transmission Date: 20141212
  Serious: Yes (Hospitalization)
  Sender: FDA-Public Use
  Company Number: US-GILEAD-2014-0098108

PATIENT
  Sex: Male

DRUGS (4)
  1. LETAIRIS [Suspect]
     Indication: PRODUCT USED FOR UNKNOWN INDICATION
     Dosage: 10 MG, QD
     Route: 065
     Dates: start: 20110217
  2. REMODULIN [Suspect]
  3. RIOCIGUAT [Concomitant]
  4. ZOFRAN                             /00955301/ [Concomitant]

REACTIONS (9)
  - Vomiting [Unknown]
  - Oedema peripheral [Unknown]
  - Decreased appetite [Unknown]
  - Pain in jaw [Unknown]
  - Paraesthesia [Unknown]
  - Erythema [Unknown]
  - Hypotension [Unknown]
  - Headache [Unknown]
  - Nausea [Unknown]
